FAERS Safety Report 8871958 (Version 2)
Quarter: 2012Q4

REPORT INFORMATION
  Report Type: 
  Country: BR (occurrence: BR)
  Receive Date: 20121029
  Receipt Date: 20121105
  Transmission Date: 20130627
  Serious: Yes (Hospitalization, Other)
  Sender: FDA-Public Use
  Company Number: PHHY2012BR094172

PATIENT
  Age: 28 Year
  Sex: Female
  Weight: 79 kg

DRUGS (7)
  1. GILENYA [Suspect]
     Indication: MULTIPLE SCLEROSIS
     Dosage: 0.5 mg, QD
     Route: 048
     Dates: start: 20121008
  2. PARACETAMOL SANDOZ [Suspect]
     Indication: PYREXIA
     Dosage: 750 mg, Q6H
     Dates: end: 20121022
  3. PARACETAMOL SANDOZ [Suspect]
     Indication: PAIN
  4. BENALET (DIPHENHYDRAMINE HCL/AMMONIUM CHL/SODIUM CITRATE) [Suspect]
     Indication: OROPHARYNGEAL PAIN
     Dates: end: 20121022
  5. CETOPROFENO//KETOPROFEN [Suspect]
     Indication: INFLAMMATION
     Dosage: 50 mg, Q6H
     Dates: end: 20121022
  6. OXCARBAZEPINE [Suspect]
     Dosage: 300 mg, UNK
     Dates: start: 2011
  7. SELENE [Concomitant]

REACTIONS (24)
  - Neck pain [Recovered/Resolved]
  - Spinal pain [Recovered/Resolved]
  - Groin pain [Recovered/Resolved]
  - Balance disorder [Recovered/Resolved]
  - Arthralgia [Recovered/Resolved]
  - Pain in extremity [Recovered/Resolved]
  - Gait disturbance [Recovered/Resolved]
  - Pharyngitis [Recovered/Resolved]
  - Oropharyngeal pain [Not Recovered/Not Resolved]
  - Swollen tongue [Recovered/Resolved]
  - Dysphagia [Recovered/Resolved]
  - Influenza [Not Recovered/Not Resolved]
  - Pyrexia [Recovered/Resolved]
  - Ear pain [Not Recovered/Not Resolved]
  - Headache [Not Recovered/Not Resolved]
  - Nausea [Unknown]
  - Back pain [Recovered/Resolved]
  - Convulsion [Recovered/Resolved]
  - Aura [Recovered/Resolved]
  - Cough [Not Recovered/Not Resolved]
  - Nasal congestion [Not Recovered/Not Resolved]
  - Emotional disorder [Recovered/Resolved]
  - Cerumen impaction [Unknown]
  - Hypertension [Unknown]
